FAERS Safety Report 9373033 (Version 1)
Quarter: 2013Q2

REPORT INFORMATION
  Report Type: Spontaneous
  Country: HR (occurrence: HR)
  Receive Date: 20130627
  Receipt Date: 20130627
  Transmission Date: 20140414
  Serious: Yes (Death)
  Sender: FDA-Public Use
  Company Number: HR-ELI_LILLY_AND_COMPANY-HR201306005620

PATIENT
  Age: 30 Year
  Sex: Male

DRUGS (2)
  1. ZYPADHERA [Suspect]
     Indication: SCHIZOPHRENIA
     Dosage: 405 MG, MONTHLY (1/M)
     Route: 030
     Dates: start: 201303, end: 20130529
  2. WELLBUTRIN [Concomitant]
     Indication: SCHIZOPHRENIA
     Dosage: 300 MG, EACH MORNING
     Dates: start: 201302

REACTIONS (1)
  - Completed suicide [Fatal]
